FAERS Safety Report 8807612 (Version 3)
Quarter: 2012Q4

REPORT INFORMATION
  Report Type: Report from Study
  Country: JP (occurrence: JP)
  Receive Date: 20120925
  Receipt Date: 20121130
  Transmission Date: 20130627
  Serious: Yes (Hospitalization)
  Sender: FDA-Public Use
  Company Number: JP-PFIZER INC-2012232570

PATIENT
  Age: 60 Year
  Sex: Male
  Weight: 68.8 kg

DRUGS (14)
  1. REVATIO [Suspect]
     Indication: PULMONARY ARTERIAL HYPERTENSION
     Dosage: 20 mg, 1x/day
     Route: 048
     Dates: start: 20120611, end: 20120624
  2. REVATIO [Suspect]
     Dosage: 20 mg, 2x/day
     Dates: start: 20120625, end: 20120726
  3. REVATIO [Suspect]
     Dosage: 20 mg, 3x/day
     Dates: start: 20120727
  4. PREDONINE [Concomitant]
     Indication: PULMONARY HYPERTENSION
     Dosage: UNK
     Route: 048
  5. MUCOSTA [Concomitant]
     Dosage: UNK
     Route: 048
  6. LASIX [Concomitant]
     Dosage: UNK
     Route: 048
  7. SALOBEL [Concomitant]
     Dosage: UNK
     Route: 048
  8. WARFARIN [Concomitant]
     Indication: PULMONARY HYPERTENSION
     Dosage: UNK
     Route: 048
     Dates: start: 20120723
  9. ARTIST [Concomitant]
     Dosage: UNK
     Route: 048
     Dates: start: 20120724
  10. ALDACTONE-A [Concomitant]
     Dosage: UNK
     Route: 048
     Dates: start: 20120724
  11. LIPITOR [Concomitant]
     Dosage: UNK
     Route: 048
     Dates: start: 20120727
  12. NU LOTAN [Concomitant]
     Dosage: UNK
     Route: 048
     Dates: start: 20120731
  13. TRACLEER [Concomitant]
     Indication: PULMONARY HYPERTENSION
     Dosage: UNK
     Route: 048
  14. BERASUS [Concomitant]
     Indication: PULMONARY HYPERTENSION
     Dosage: UNK
     Route: 048

REACTIONS (1)
  - Splenic infarction [Recovered/Resolved]
